FAERS Safety Report 11211312 (Version 1)
Quarter: 2015Q2

REPORT INFORMATION
  Report Type: Spontaneous
  Country: US (occurrence: US)
  Receive Date: 20150623
  Receipt Date: 20150623
  Transmission Date: 20150821
  Serious: Yes (Hospitalization, Other)
  Sender: FDA-Public Use
  Company Number: US-PAR PHARMACEUTICAL, INC-2015SCPR014062

PATIENT

DRUGS (3)
  1. TENOFOVIR [Concomitant]
     Active Substance: TENOFOVIR
     Indication: HEPATITIS B
     Dosage: 300 MG, DAILY
     Route: 065
  2. GLYBURIDE/METFORMIN [Suspect]
     Active Substance: GLYBURIDE\METFORMIN
     Indication: DIABETES MELLITUS
     Dosage: 5/500 MG, QID
     Route: 065
  3. NATEGLINIDE. [Suspect]
     Active Substance: NATEGLINIDE
     Indication: DIABETES MELLITUS
     Dosage: 120 MG, BID
     Route: 048

REACTIONS (8)
  - Toxicity to various agents [Recovered/Resolved]
  - Blood lactic acid increased [Unknown]
  - Mental status changes [Recovered/Resolved]
  - VIIth nerve paralysis [Recovered/Resolved]
  - Hemiparesis [Recovered/Resolved]
  - Hypoglycaemia [Recovered/Resolved]
  - Vomiting [Recovered/Resolved]
  - Acute kidney injury [Recovered/Resolved]
